FAERS Safety Report 9485833 (Version 1)
Quarter: 2013Q3

REPORT INFORMATION
  Report Type: Spontaneous
  Country: US (occurrence: None)
  Receive Date: 20130807
  Receipt Date: 20130807
  Transmission Date: 20140515
  Serious: Yes (Other)
  Sender: FDA-Public Use
  Company Number: 2013037157

PATIENT
  Age: 15 Year
  Sex: Male

DRUGS (2)
  1. IVIG (IMMUNE GLOBULIN INTRAVENOUS (HUMAN)) [Suspect]
     Indication: AUTOIMMUNE HAEMOLYTIC ANAEMIA
  2. IVIG (IMMUNE GLOBULIN INTRAVENOUS (HUMAN)) [Suspect]

REACTIONS (4)
  - Dyspnoea [None]
  - Fatigue [None]
  - Palpitations [None]
  - Haemoglobin decreased [None]
